FAERS Safety Report 4313451-0 (Version None)
Quarter: 2004Q1

REPORT INFORMATION
  Report Type: 
  Country: None (occurrence: None)
  Receive Date: 20040308
  Receipt Date: 20031013
  Transmission Date: 20041129
  Serious: Yes (Hospitalization)
  Sender: FDA-Public Use
  Company Number: WAES 0310USA01521

PATIENT
  Age: 49 Year
  Sex: Male

DRUGS (1)
  1. VIOXX [Suspect]
     Indication: ARTHRALGIA
     Route: 048
     Dates: start: 20010215, end: 20010421

REACTIONS (18)
  - ABDOMINAL PAIN [None]
  - ACUTE MYOCARDIAL INFARCTION [None]
  - ARRHYTHMIA [None]
  - CARDIAC DISORDER [None]
  - CHANGE OF BOWEL HABIT [None]
  - CORONARY ARTERY ATHEROSCLEROSIS [None]
  - CORONARY ARTERY OCCLUSION [None]
  - DIVERTICULUM [None]
  - EJECTION FRACTION DECREASED [None]
  - HAEMORRHOIDS [None]
  - HEART RATE DECREASED [None]
  - MYOCARDIAL INFARCTION [None]
  - MYOCARDIAL ISCHAEMIA [None]
  - POLYP [None]
  - RECTAL HAEMORRHAGE [None]
  - RENAL FAILURE [None]
  - THROMBOSIS [None]
  - VISUAL DISTURBANCE [None]
